FAERS Safety Report 22168407 (Version 3)
Quarter: 2023Q2

REPORT INFORMATION
  Report Type: Spontaneous
  Country: US (occurrence: US)
  Receive Date: 20230403
  Receipt Date: 20230612
  Transmission Date: 20230721
  Serious: No
  Sender: FDA-Public Use
  Company Number: US-BRISTOL-MYERS SQUIBB COMPANY-2023-046657

PATIENT
  Age: 78 Year
  Sex: Male

DRUGS (3)
  1. IDHIFA [Suspect]
     Active Substance: ENASIDENIB MESYLATE
     Indication: Myelodysplastic syndrome
     Dosage: DOSE : UNAVAILABLE;     FREQ : TAKE 1 TABLET BY MOUTH ONCE DAILY
     Route: 048
     Dates: start: 202212, end: 20230321
  2. IDHIFA [Suspect]
     Active Substance: ENASIDENIB MESYLATE
     Indication: Acute myeloid leukaemia
     Dosage: DOSE : UNAVAILABLE;     FREQ : TAKE 1 TABLET BY MOUTH ONCE DAILY
     Route: 048
     Dates: start: 20221104, end: 20230314
  3. IDHIFA [Suspect]
     Active Substance: ENASIDENIB MESYLATE
     Dosage: RESUMED TREATMENT AT A LOWERED DOSE OF 50 MG THEN INCREASED TO 100 MG DAILY.
     Route: 048
     Dates: start: 20230517

REACTIONS (5)
  - Liver disorder [Unknown]
  - Diarrhoea [Unknown]
  - Weight decreased [Unknown]
  - Liver function test abnormal [Recovering/Resolving]
  - Hepatomegaly [Unknown]

NARRATIVE: CASE EVENT DATE: 20230314
